FAERS Safety Report 11436039 (Version 1)
Quarter: 2015Q3

REPORT INFORMATION
  Report Type: Spontaneous
  Country: US (occurrence: US)
  Receive Date: 20150821
  Receipt Date: 20150821
  Transmission Date: 20151125
  Serious: Yes (Other)
  Sender: FDA-Public Use
  Company Number: US-ELI_LILLY_AND_COMPANY-US201310008341

PATIENT
  Sex: Male

DRUGS (2)
  1. INSULIN HUMAN [Suspect]
     Active Substance: INSULIN HUMAN
     Indication: DIABETES MELLITUS
     Dosage: UNK UNK, PRN
     Route: 065
  2. INSULIN [Concomitant]
     Active Substance: INSULIN NOS
     Indication: DIABETES MELLITUS
     Dosage: 30 U, UNKNOWN
     Route: 065

REACTIONS (4)
  - Cataract [Unknown]
  - Blood glucose decreased [Recovered/Resolved]
  - Glaucoma [Unknown]
  - Visual impairment [Not Recovered/Not Resolved]
